FAERS Safety Report 9486499 (Version 1)
Quarter: 2013Q3

REPORT INFORMATION
  Report Type: Spontaneous
  Country: US (occurrence: None)
  Receive Date: 20130827
  Receipt Date: 20130827
  Transmission Date: 20140515
  Serious: Yes (Life-Threatening, Hospitalization)
  Sender: FDA-Public Use
  Company Number: None

PATIENT
  Sex: 0

DRUGS (1)
  1. GENERESS FE [Suspect]
     Indication: IRRITABLE BOWEL SYNDROME
     Route: 048
     Dates: start: 20111113, end: 20120425

REACTIONS (5)
  - Blood cholesterol increased [None]
  - Pharyngitis streptococcal [None]
  - Fatigue [None]
  - Pulmonary thrombosis [None]
  - Cardiomegaly [None]
